FAERS Safety Report 12726200 (Version 1)
Quarter: 2016Q3

REPORT INFORMATION
  Report Type: Spontaneous
  Country: None (occurrence: GB)
  Receive Date: 20160908
  Receipt Date: 20160908
  Transmission Date: 20161109
  Serious: Yes (Other)
  Sender: FDA-Public Use
  Company Number: GB-MEDAC PHARMA, INC.-1057179

PATIENT
  Age: 24 Year
  Sex: Male
  Weight: 67 kg

DRUGS (17)
  1. COAL TAR. [Concomitant]
     Active Substance: COAL TAR
     Route: 061
     Dates: start: 20160225, end: 20160729
  2. DERMOL [Concomitant]
     Active Substance: BENZALKONIUM CHLORIDE\CHLORHEXIDINE HYDROCHLORIDE\ISOPROPYL MYRISTATE\PARAFFIN
     Dates: start: 20160225
  3. MOMETASONE FUROATE. [Concomitant]
     Active Substance: MOMETASONE FUROATE
     Dates: start: 20160419
  4. DIAZEPAM. [Concomitant]
     Active Substance: DIAZEPAM
     Dates: start: 20160819
  5. NAPROXEN. [Concomitant]
     Active Substance: NAPROXEN
     Dates: start: 20160225
  6. NEORAL [Concomitant]
     Active Substance: CYCLOSPORINE
     Dates: start: 20160419, end: 20160729
  7. CALCIPOTRIOL [Concomitant]
     Active Substance: CALCIPOTRIENE
     Dates: start: 20160225, end: 20160729
  8. ALLOPURINOL. [Concomitant]
     Active Substance: ALLOPURINOL
     Dates: start: 20160803
  9. FOLIC ACID. [Concomitant]
     Active Substance: FOLIC ACID
     Dates: start: 20160729
  10. GABAPENTIN. [Concomitant]
     Active Substance: GABAPENTIN
     Dates: start: 20160225, end: 20160729
  11. HYDROXYZINE [Concomitant]
     Active Substance: HYDROXYZINE\HYDROXYZINE HYDROCHLORIDE
  12. METHOTREXATE. [Suspect]
     Active Substance: METHOTREXATE
     Dates: start: 20160729
  13. ZOPICLONE [Concomitant]
     Active Substance: ZOPICLONE
     Dates: start: 20160729
  14. AMITRIPTYLINE HYDROCHLORIDE. [Concomitant]
     Active Substance: AMITRIPTYLINE HYDROCHLORIDE
     Dates: start: 20160225, end: 20160729
  15. EMOLLIN [Concomitant]
     Dates: start: 20160225
  16. EPADERM [Concomitant]
     Active Substance: MINERAL OIL\PETROLATUM\WAX, EMULSIFYING
     Dates: start: 20160225
  17. UREA. [Concomitant]
     Active Substance: UREA
     Dates: start: 20160225, end: 20160729

REACTIONS (4)
  - Paranoia [Unknown]
  - Panic attack [Unknown]
  - Fatigue [Unknown]
  - Anxiety [Unknown]

NARRATIVE: CASE EVENT DATE: 20160819
